FAERS Safety Report 8893205 (Version 1)
Quarter: 2012Q4

REPORT INFORMATION
  Report Type: Spontaneous
  Country: US (occurrence: None)
  Receive Date: 20121101
  Receipt Date: 20121101
  Transmission Date: 20130627
  Serious: Yes (Other)
  Sender: FDA-Public Use
  Company Number: TPA2012A08313

PATIENT
  Age: 71 Year
  Sex: Female
  Weight: 113.4 kg

DRUGS (1)
  1. ACTOS (PIOGLITAZONE HYDROCHLORIDE) [Suspect]
     Indication: TYPE 2 DIABETES MELLITUS
     Dosage: 1 IN 1 D
     Route: 048
     Dates: end: 2012

REACTIONS (4)
  - Loss of consciousness [None]
  - Hyperhidrosis [None]
  - Palpitations [None]
  - Vomiting [None]
